FAERS Safety Report 17109217 (Version 1)
Quarter: 2019Q4

REPORT INFORMATION
  Report Type: Spontaneous
  Country: PT (occurrence: PT)
  Receive Date: 20191204
  Receipt Date: 20191204
  Transmission Date: 20200122
  Serious: Yes (Hospitalization, Other)
  Sender: FDA-Public Use
  Company Number: PT-AMGEN-PRTNI2019200578

PATIENT
  Age: 35 Year
  Sex: Female
  Weight: 66 kg

DRUGS (10)
  1. TAXOL [Suspect]
     Active Substance: PACLITAXEL
     Indication: HER-2 POSITIVE BREAST CANCER
     Dosage: 140 MILLIGRAM, QWK (MOST RECENT DOSE PRIOR TO THE EVENT: 06/NOV/2018)
     Route: 042
     Dates: start: 20180605, end: 20181030
  2. CLEMASTINE [Concomitant]
     Active Substance: CLEMASTINE
     Dosage: ONGOING = CHECKED
     Route: 065
     Dates: start: 20180605
  3. DEXAMETHASONE. [Concomitant]
     Active Substance: DEXAMETHASONE
     Dosage: ONGOING = CHECKED
     Route: 065
     Dates: start: 20180605
  4. ONDANSETRON [Concomitant]
     Active Substance: ONDANSETRON
     Dosage: ONGOING = CHECKED
     Route: 065
     Dates: start: 20180612
  5. RANITIDINE. [Concomitant]
     Active Substance: RANITIDINE
     Dosage: ONGOING = CHECKED
     Route: 065
     Dates: start: 20180605
  6. ONDANSETRON [Concomitant]
     Active Substance: ONDANSETRON
     Dosage: ONGOING = CHECKED
     Route: 065
     Dates: start: 20180605
  7. FOLIFER [FERROUS SULFATE;FOLIC ACID] [Concomitant]
     Dosage: ONGOING = CHECKED
     Route: 065
  8. TRASTUZUMAB. [Suspect]
     Active Substance: TRASTUZUMAB
     Indication: HER-2 POSITIVE BREAST CANCER
     Dosage: 530 MILLIGRAM, Q3WK (MOST RECENT DOSE PRIOR TO AE 15/JAN/2019)
     Route: 041
     Dates: start: 20180605
  9. METOCLOPRAMIDE. [Concomitant]
     Active Substance: METOCLOPRAMIDE
     Dosage: ONGOING = CHECKED
     Route: 065
     Dates: start: 20180612
  10. PERTUZUMAB. [Suspect]
     Active Substance: PERTUZUMAB
     Indication: HER-2 POSITIVE BREAST CANCER
     Dosage: 840 MILLIGRAM, 3 TIMES/WK (MOST RECENT DOSE PRIOR TO AE 15/JAN/2019)
     Route: 042
     Dates: start: 20180605

REACTIONS (2)
  - Off label use [Unknown]
  - Pulmonary embolism [Not Recovered/Not Resolved]

NARRATIVE: CASE EVENT DATE: 20190920
